FAERS Safety Report 24264967 (Version 1)
Quarter: 2024Q3

REPORT INFORMATION
  Report Type: Spontaneous
  Country: US (occurrence: None)
  Receive Date: 20240828
  Receipt Date: 20240828
  Transmission Date: 20241016
  Serious: Yes (Other)
  Sender: Public
  Company Number: None

PATIENT
  Age: 69 Year
  Sex: Female
  Weight: 65.25 kg

DRUGS (1)
  1. OZEMPIC [Suspect]
     Active Substance: SEMAGLUTIDE

REACTIONS (5)
  - Heart rate increased [None]
  - Panic attack [None]
  - Obsessive thoughts [None]
  - Generalised anxiety disorder [None]
  - Feeling abnormal [None]

NARRATIVE: CASE EVENT DATE: 20240520
